FAERS Safety Report 22044111 (Version 2)
Quarter: 2023Q1

REPORT INFORMATION
  Report Type: Spontaneous
  Country: AU (occurrence: AU)
  Receive Date: 20230228
  Receipt Date: 20230302
  Transmission Date: 20230418
  Serious: Yes (Death, Other)
  Sender: FDA-Public Use
  Company Number: AU-ABBVIE-4135054

PATIENT
  Age: 61 Year
  Sex: Male

DRUGS (2)
  1. ADALIMUMAB [Suspect]
     Active Substance: ADALIMUMAB
     Indication: Toxic epidermal necrolysis
     Dosage: DAY 6
     Route: 058
  2. PREDNISONE [Concomitant]
     Active Substance: PREDNISONE
     Indication: Product used for unknown indication
     Route: 048

REACTIONS (5)
  - Non-small cell lung cancer stage IV [Fatal]
  - Off label use [Unknown]
  - Conjunctivitis [Recovered/Resolved]
  - Drug effective for unapproved indication [Unknown]
  - Pneumonia [Recovered/Resolved]
